FAERS Safety Report 7771806-6 (Version None)
Quarter: 2011Q3

REPORT INFORMATION
  Report Type: 
  Country: None (occurrence: None)
  Receive Date: 20110922
  Receipt Date: 20110916
  Transmission Date: 20111222
  Serious: Yes (Hospitalization, Other)
  Sender: FDA-Public Use
  Company Number: US-UCBSA-041468

PATIENT
  Sex: Male

DRUGS (2)
  1. CIMZIA [Suspect]
     Indication: CROHN'S DISEASE
     Route: 058
     Dates: start: 20100723
  2. LOBATAL [Concomitant]

REACTIONS (3)
  - MOVEMENT DISORDER [None]
  - BRADYCARDIA [None]
  - NEOPLASM MALIGNANT [None]
